FAERS Safety Report 8496823-2 (Version None)
Quarter: 2012Q3

REPORT INFORMATION
  Report Type: 
  Country: None (occurrence: None)
  Receive Date: 20120709
  Receipt Date: 20120702
  Transmission Date: 20120928
  Serious: Yes (Other)
  Sender: FDA-Public Use
  Company Number: US-PFIZER INC-2011072569

PATIENT
  Sex: Female
  Weight: 83.9 kg

DRUGS (19)
  1. XANAX [Concomitant]
     Dosage: 1 MG, 3X/DAY
     Dates: start: 20120517
  2. LISINOPRIL [Concomitant]
     Dosage: 5 MG, (0.5 TAB DAILY )
     Dates: start: 20120203
  3. ATACAND [Concomitant]
     Indication: HYPERTENSION
     Dosage: 16 MG, DAILY
     Dates: start: 20100401
  4. OMEPRAZOLE [Concomitant]
     Dosage: 20 MG, 1X/DAY
     Dates: start: 20120615
  5. NORCO [Concomitant]
     Indication: PAIN
     Dosage: 7.5/325MG 1-2 TABS EVERY 4-6 HOURS AS NEEDED
     Dates: start: 20120605
  6. PRISTIQ [Suspect]
     Indication: DEPRESSION
     Dosage: 50 MG, 2X/DAY
     Route: 048
  7. COREG [Concomitant]
     Indication: CARDIAC DISORDER
     Dosage: 12.5 MG, 2X/DAY
     Dates: start: 20110630
  8. KLOR-CON [Concomitant]
     Dosage: 20 MEQ, 1X/DAY
     Dates: start: 20120615
  9. FENOFIBRATE [Concomitant]
     Dosage: 54 MG, 1X/DAY
     Dates: start: 20120605
  10. TOPAMAX [Concomitant]
     Dosage: 25 MG, 2 TABLETS TWICE DAILY
     Dates: start: 20120203
  11. NITROLINGUAL [Concomitant]
     Dosage: 1 SPRAY EVERY 5 MIN X3 PRN
     Dates: start: 20120203
  12. WARFARIN SODIUM [Concomitant]
     Dosage: 5 MG, 1X/DAY
     Dates: start: 20120615
  13. IMDUR [Concomitant]
     Dosage: 30 MG, EVERY MORNING
     Dates: start: 20120615
  14. TEMAZEPAM [Concomitant]
     Dosage: 30 MG, AT BEDTIME
     Dates: start: 20120321
  15. TOPAMAX [Concomitant]
     Dosage: 50 MG, 2X/DAY
     Dates: start: 20120321
  16. ACETYLSALICYLIC ACID [Concomitant]
     Dosage: 325 MG, TWO TAB DAILY
     Dates: start: 20120321
  17. LASIX [Concomitant]
     Dosage: 20 MG, 2X/DAY
     Dates: start: 20120615
  18. PLAVIX [Concomitant]
     Dosage: 75 MG, 1X/DAY
     Dates: start: 20120207
  19. INFLUENZA VACCINE [Concomitant]

REACTIONS (9)
  - MEMORY IMPAIRMENT [None]
  - ARTERIAL OCCLUSIVE DISEASE [None]
  - MALAISE [None]
  - CRYING [None]
  - AMNESIA [None]
  - SUICIDAL IDEATION [None]
  - MYOCARDIAL INFARCTION [None]
  - CARDIAC FAILURE [None]
  - DEPRESSION [None]
